FAERS Safety Report 25651046 (Version 1)
Quarter: 2025Q3

REPORT INFORMATION
  Report Type: Spontaneous
  Country: JP (occurrence: JP)
  Receive Date: 20250806
  Receipt Date: 20250806
  Transmission Date: 20251021
  Serious: Yes (Other)
  Sender: TAKEDA
  Company Number: JP-TAKEDA-2025TUS069863

PATIENT
  Age: 75 Year
  Sex: Male

DRUGS (2)
  1. LIALDA [Suspect]
     Active Substance: MESALAMINE
     Indication: Colitis ulcerative
  2. Cortiment [Concomitant]
     Indication: Colitis ulcerative
     Dosage: UNK UNK, QD

REACTIONS (3)
  - Gastric cancer [Unknown]
  - Drug ineffective [Recovered/Resolved]
  - Diarrhoea [Unknown]
